FAERS Safety Report 25952169 (Version 1)
Quarter: 2025Q4

REPORT INFORMATION
  Report Type: Spontaneous
  Country: EU (occurrence: EU)
  Receive Date: 20251023
  Receipt Date: 20251023
  Transmission Date: 20260118
  Serious: Yes (Hospitalization)
  Sender: Haleon PLC
  Company Number: EU-SA-2024SA256865

PATIENT
  Age: 31 Year
  Sex: Female

DRUGS (10)
  1. ACETAMINOPHEN [Suspect]
     Active Substance: ACETAMINOPHEN
     Indication: Oropharyngeal pain
     Dosage: TIME INTERVAL: 0.33333333 DAYS: 1 G, TID
  2. SERTRALINE HYDROCHLORIDE [Suspect]
     Active Substance: SERTRALINE HYDROCHLORIDE
     Indication: Depression
     Dosage: 100 MG, QD (IN THE MORNING)
  3. NALTREXONE [Suspect]
     Active Substance: NALTREXONE
     Indication: Product used for unknown indication
     Dosage: UNK
  4. BUPROPION [Suspect]
     Active Substance: BUPROPION
     Indication: Product used for unknown indication
     Dosage: UNK
  5. ZOLPIDEM TARTRATE [Suspect]
     Active Substance: ZOLPIDEM TARTRATE
     Indication: Insomnia
     Dosage: UNK
  6. RAMIPRIL [Suspect]
     Active Substance: RAMIPRIL
     Indication: Hypertension
     Dosage: 10 MG, QD
  7. AMOXICILLIN AND CLAVULANATE POTASSIUM [Suspect]
     Active Substance: AMOXICILLIN\CLAVULANATE POTASSIUM
     Indication: Oropharyngeal pain
     Dosage: UNK
  8. AMLODIPINE [Suspect]
     Active Substance: AMLODIPINE BESYLATE
     Indication: Hypertension
     Dosage: 10 MG
  9. DICLOFENAC [Suspect]
     Active Substance: DICLOFENAC
     Indication: Oropharyngeal pain
     Dosage: UNK (MOUTHWASH)
  10. AMOXICILLIN [Suspect]
     Active Substance: AMOXICILLIN
     Indication: Oropharyngeal pain
     Dosage: TIME INTERVAL: 0.33333333 DAYS: 1 G, TID
     Route: 048

REACTIONS (6)
  - Condition aggravated [Recovering/Resolving]
  - Pain [Recovering/Resolving]
  - Dysphagia [Recovering/Resolving]
  - Oropharyngeal pain [Recovering/Resolving]
  - Burning sensation [Recovering/Resolving]
  - Drug interaction [Recovering/Resolving]
